FAERS Safety Report 9200946 (Version 3)
Quarter: 2013Q2

REPORT INFORMATION
  Report Type: Spontaneous
  Country: BE (occurrence: BE)
  Receive Date: 20130320
  Receipt Date: 20130529
  Transmission Date: 20140414
  Serious: Yes (Other)
  Sender: FDA-Public Use
  Company Number: 2013035078

PATIENT
  Age: 68 Year
  Sex: Male

DRUGS (7)
  1. PRIVIGEN (IMMUNE GLOBULIN INTRAVENOUS (HUMAN) 10% LIQUID) [Suspect]
     Dosage: 25 ML/H; MAX INFUSION RATE 403 ML/H.
     Route: 042
     Dates: start: 20130307, end: 20130307
  2. ASAFLOW (ACETYLSALICYLIC ACID) [Concomitant]
  3. EMCONCOR (BISOPROLOL) [Concomitant]
  4. TOTALIP (ATORVASTATIN CALCIUM) [Concomitant]
  5. OMEPRAZOL (OMEPRAZOLE) [Concomitant]
  6. RANITIDINE (RANITIDINE) [Concomitant]
  7. REDOMEX (AMITRIPTYLINE HYDROCHLORIDE) [Concomitant]

REACTIONS (3)
  - Hypersensitivity [None]
  - Chest pain [None]
  - Dysphagia [None]
